FAERS Safety Report 4435377-4 (Version None)
Quarter: 2004Q3

REPORT INFORMATION
  Report Type: 
  Country: None (occurrence: None)
  Receive Date: 20040826
  Receipt Date: 20040813
  Transmission Date: 20050211
  Serious: Yes (Hospitalization)
  Sender: FDA-Public Use
  Company Number: 2004221830GB

PATIENT
  Age: 62 Year
  Sex: Female
  Weight: 75.7 kg

DRUGS (3)
  1. EXEMESTANE UNBLINDED [Suspect]
     Indication: BREAST CANCER
     Dosage: 25 MG, QD, ORAL
     Route: 048
     Dates: start: 20010302
  2. BENDROFLUAZIDE [Concomitant]
  3. FELODIPINE [Concomitant]

REACTIONS (1)
  - UTERINE POLYP [None]
